FAERS Safety Report 9914145 (Version 3)
Quarter: 2014Q2

REPORT INFORMATION
  Report Type: Spontaneous
  Country: US (occurrence: US)
  Receive Date: 20140220
  Receipt Date: 20140429
  Transmission Date: 20141212
  Serious: Yes (Other)
  Sender: FDA-Public Use
  Company Number: US-PFIZER INC-2014046760

PATIENT
  Age: 80 Year
  Sex: Female
  Weight: 109 kg

DRUGS (1)
  1. PREMARIN [Suspect]
     Indication: MENOPAUSAL SYMPTOMS
     Dosage: 200 MG, 1X/DAY
     Route: 048

REACTIONS (3)
  - Arthritis [Unknown]
  - Body height decreased [Unknown]
  - Weight fluctuation [Unknown]
